FAERS Safety Report 25800267 (Version 1)
Quarter: 2025Q3

REPORT INFORMATION
  Report Type: Spontaneous
  Country: US (occurrence: US)
  Receive Date: 20250915
  Receipt Date: 20250915
  Transmission Date: 20251020
  Serious: Yes (Hospitalization)
  Sender: VELOXIS PHARMACEUTICALS
  Company Number: US-VELOXIS PHARMACEUTICALS, INC.-2025-VEL-00526

PATIENT
  Age: 73 Year
  Sex: Male

DRUGS (1)
  1. ENVARSUS XR [Suspect]
     Active Substance: TACROLIMUS
     Indication: Renal transplant

REACTIONS (8)
  - Limb injury [Unknown]
  - Haematochezia [Unknown]
  - Gastrointestinal motility disorder [Unknown]
  - Decreased appetite [Unknown]
  - Asthenia [Unknown]
  - Escherichia infection [Unknown]
  - Haemoglobin decreased [Unknown]
  - Gastric ulcer [Unknown]
